FAERS Safety Report 16250102 (Version 2)
Quarter: 2019Q2

REPORT INFORMATION
  Report Type: Spontaneous
  Country: US (occurrence: CA)
  Receive Date: 20190429
  Receipt Date: 20190507
  Transmission Date: 20190711
  Serious: Yes (Death, Other)
  Sender: FDA-Public Use
  Company Number: US-PFIZER INC-3217748

PATIENT
  Age: 36 Year
  Sex: Female

DRUGS (6)
  1. MARIJUANA [Suspect]
     Active Substance: CANNABIS SATIVA SUBSP. INDICA TOP
     Dosage: UNK
  2. COCAINE [Suspect]
     Active Substance: COCAINE
     Dosage: UNK
  3. ROCURONIUM BROMIDE. [Suspect]
     Active Substance: ROCURONIUM BROMIDE
     Dosage: UNK
     Dates: start: 20150801, end: 20150801
  4. ALCOHOL. [Suspect]
     Active Substance: ALCOHOL
     Dosage: UNK
  5. MORPHINE SULFATE. [Suspect]
     Active Substance: MORPHINE SULFATE
     Dosage: UNK
  6. FENTANYL CITRATE. [Suspect]
     Active Substance: FENTANYL CITRATE
     Dosage: UNK

REACTIONS (8)
  - Paralysis [Fatal]
  - Overdose [Fatal]
  - Respiratory arrest [Fatal]
  - Substance abuse [Fatal]
  - Substance dependence [Fatal]
  - Wrong product administered [Fatal]
  - Respiratory failure [Fatal]
  - Drug abuse [Fatal]

NARRATIVE: CASE EVENT DATE: 20150801
